FAERS Safety Report 7046379-6 (Version None)
Quarter: 2010Q4

REPORT INFORMATION
  Report Type: 
  Country: None (occurrence: None)
  Receive Date: 20101014
  Receipt Date: 20101011
  Transmission Date: 20110411
  Serious: Yes (Other)
  Sender: FDA-Public Use
  Company Number: IS-ROCHE-600186

PATIENT
  Sex: Female
  Weight: 63.5 kg

DRUGS (6)
  1. TOCILIZUMAB [Suspect]
     Indication: RHEUMATOID ARTHRITIS
     Dosage: FORM:INFUSION, UNITS FOR THE DOSE WAS REPORTED AS : MG/KG; LAST DOSE PRIOR TO SAE 25 NOV 2008
     Route: 042
     Dates: start: 20061031, end: 20081223
  2. TOCILIZUMAB [Suspect]
     Dosage: PATIENTS ON THIS STUDY COMPLETED A DOUBLE-BLIND MRA CORE STUDY WHICH WAS COMPLETED WITH EXISTING SAE
     Route: 042
  3. METHOTREXATE [Suspect]
     Indication: RHEUMATOID ARTHRITIS
     Route: 065
  4. PREDNISOLON [Concomitant]
  5. FOLIC ACID [Concomitant]
  6. SIMVASTATIN [Concomitant]

REACTIONS (1)
  - VIITH NERVE PARALYSIS [None]
